FAERS Safety Report 7559836-0 (Version None)
Quarter: 2011Q2

REPORT INFORMATION
  Report Type: 
  Country: None (occurrence: None)
  Receive Date: 20110621
  Receipt Date: 20110603
  Transmission Date: 20111010
  Serious: No
  Sender: FDA-Public Use
  Company Number: US-B.I. PHARMACEUTICALS,INC./RIDGEFIELD-2011-BP-14683BP

PATIENT
  Sex: Male

DRUGS (10)
  1. ZYRTEC [Concomitant]
     Indication: MULTIPLE ALLERGIES
  2. ADVAIR DISKUS 100/50 [Concomitant]
     Indication: CHRONIC OBSTRUCTIVE PULMONARY DISEASE
  3. ALBUTEROL SULFATE AUTOHALER [Concomitant]
     Indication: MULTIPLE ALLERGIES
  4. CELEBREX [Concomitant]
     Indication: BACK PAIN
  5. ADVAIR DISKUS 100/50 [Concomitant]
     Indication: MULTIPLE ALLERGIES
  6. LISINOPRIL [Concomitant]
     Indication: ATRIAL FIBRILLATION
     Dosage: 10 MG
  7. FINASTERIDE [Concomitant]
     Indication: PROSTATOMEGALY
  8. PRADAXA [Suspect]
     Indication: ATRIAL FIBRILLATION
     Dosage: 300 MG
     Route: 048
     Dates: start: 20110401
  9. ALBUTEROL SULFATE AUTOHALER [Concomitant]
     Indication: CHRONIC OBSTRUCTIVE PULMONARY DISEASE
  10. COREG [Concomitant]
     Indication: ATRIAL FIBRILLATION
     Dosage: 25 MG

REACTIONS (2)
  - BALANCE DISORDER [None]
  - FALL [None]
